FAERS Safety Report 4599272-2 (Version None)
Quarter: 2005Q1

REPORT INFORMATION
  Report Type: 
  Country: None (occurrence: None)
  Receive Date: 20050302
  Receipt Date: 20050301
  Transmission Date: 20050727
  Serious: Yes (Hospitalization)
  Sender: FDA-Public Use
  Company Number: 2005-BP-01144MX

PATIENT
  Sex: Female

DRUGS (1)
  1. MOBIC [Suspect]
     Indication: BACK PAIN
     Dosage: 7.5 MG (7.5 MG, 1 TA O.D); PO
     Route: 048
     Dates: end: 20050121

REACTIONS (2)
  - CONVULSION [None]
  - DEPRESSED LEVEL OF CONSCIOUSNESS [None]
